FAERS Safety Report 6043947-5 (Version None)
Quarter: 2009Q1

REPORT INFORMATION
  Report Type: 
  Country: None (occurrence: None)
  Receive Date: 20090120
  Receipt Date: 20090116
  Transmission Date: 20090719
  Serious: Yes (Other)
  Sender: FDA-Public Use
  Company Number: US-BRISTOL-MYERS SQUIBB COMPANY-14475214

PATIENT
  Sex: Male

DRUGS (2)
  1. COUMADIN [Suspect]
  2. PLAVIX [Suspect]

REACTIONS (1)
  - MYOCARDIAL INFARCTION [None]
